FAERS Safety Report 8390318-2 (Version None)
Quarter: 2012Q2

REPORT INFORMATION
  Report Type: 
  Country: None (occurrence: None)
  Receive Date: 20120529
  Receipt Date: 20120522
  Transmission Date: 20120825
  Serious: Yes (Other)
  Sender: FDA-Public Use
  Company Number: BR-PFIZER INC-2012124632

PATIENT
  Age: 76 Year
  Sex: Male
  Weight: 76 kg

DRUGS (6)
  1. CELEBREX [Suspect]
     Dosage: 200 MG (ONE CAPSULE), 2X/DAY
     Route: 048
     Dates: start: 20091106
  2. WARFARIN SODIUM [Concomitant]
     Indication: ANTICOAGULANT THERAPY
     Dosage: ONE TABLET DAILY, WITH 1/5 TABLETS ON ALTERNATE DAYS
  3. DIGOBAL [Concomitant]
     Indication: CARDIAC DISORDER
     Dosage: ONE TABLET ON ALTERNATE DAYS
  4. LEVOTHYROXINE SODIUM [Concomitant]
     Indication: THYROID DISORDER
     Dosage: ONE TABLET DAILY
  5. LOSARTAN [Concomitant]
     Indication: CARDIAC DISORDER
     Dosage: ONE TABLET DAILY
     Dates: start: 20090101
  6. FERRONIL [Concomitant]
     Indication: CARDIAC DISORDER
     Dosage: ONE TABLET DAILY

REACTIONS (3)
  - FATIGUE [None]
  - RENAL DISORDER [None]
  - PAIN [None]
